FAERS Safety Report 9160461 (Version 1)
Quarter: 2013Q1

REPORT INFORMATION
  Report Type: Report from Study
  Country: CA (occurrence: CA)
  Receive Date: 20130313
  Receipt Date: 20130313
  Transmission Date: 20140127
  Serious: Yes (Hospitalization)
  Sender: FDA-Public Use
  Company Number: CA-JNJFOC-20130300693

PATIENT
  Sex: Male

DRUGS (4)
  1. REMICADE [Suspect]
     Indication: CROHN^S DISEASE
     Route: 042
     Dates: start: 20130123
  2. REMICADE [Suspect]
     Indication: CROHN^S DISEASE
     Dosage: LOADING DOSES
     Route: 042
     Dates: start: 20130109
  3. METHOTREXATE [Concomitant]
     Route: 065
  4. TECTA [Concomitant]
     Route: 065

REACTIONS (1)
  - Hospitalisation [Unknown]
